FAERS Safety Report 25133876 (Version 3)
Quarter: 2025Q2

REPORT INFORMATION
  Report Type: Spontaneous
  Country: BR (occurrence: BR)
  Receive Date: 20250328
  Receipt Date: 20250409
  Transmission Date: 20250717
  Serious: No
  Sender: ABBVIE
  Company Number: BR-ABBVIE-6195970

PATIENT
  Sex: Male

DRUGS (1)
  1. RINVOQ [Suspect]
     Active Substance: UPADACITINIB
     Indication: Dermatitis
     Route: 048
     Dates: start: 2023

REACTIONS (1)
  - Dermatitis [Unknown]
